FAERS Safety Report 24905592 (Version 1)
Quarter: 2025Q1

REPORT INFORMATION
  Report Type: Spontaneous
  Country: US (occurrence: US)
  Receive Date: 20250130
  Receipt Date: 20250130
  Transmission Date: 20250408
  Serious: No
  Sender: HRA PHARMA
  Company Number: US-ORG100014127-2024000035

PATIENT
  Age: 41 Year
  Sex: Male

DRUGS (6)
  1. METYRAPONE [Suspect]
     Active Substance: METYRAPONE
     Indication: Cushing^s syndrome
  2. KETOCONAZOLE [Suspect]
     Active Substance: KETOCONAZOLE
     Indication: Cushing^s syndrome
  3. CABOMETYX [Suspect]
     Active Substance: CABOZANTINIB S-MALATE
     Indication: Cushing^s syndrome
  4. CALCITRIOL [Concomitant]
     Active Substance: CALCITRIOL
     Indication: Cushing^s syndrome
  5. CALCIUM [Concomitant]
     Active Substance: CALCIUM
     Indication: Cushing^s syndrome
  6. VITAMIN D3 [Concomitant]
     Active Substance: CHOLECALCIFEROL
     Indication: Cushing^s syndrome

REACTIONS (1)
  - Off label use [Unknown]
